FAERS Safety Report 22280052 (Version 4)
Quarter: 2023Q2

REPORT INFORMATION
  Report Type: Spontaneous
  Country: ES (occurrence: ES)
  Receive Date: 20230503
  Receipt Date: 20230523
  Transmission Date: 20230722
  Serious: Yes (Other)
  Sender: FDA-Public Use
  Company Number: ES-CINFAGATEW-2023000564

PATIENT
  Age: 7 Year
  Sex: Female

DRUGS (2)
  1. TOPIRAMATE [Suspect]
     Active Substance: TOPIRAMATE
     Indication: Migraine prophylaxis
     Dosage: 25 MG, BIDASCENDING TO A DOSE OF 25MG EVERY 12 HR.
     Route: 048
  2. TOPIRAMATE [Suspect]
     Active Substance: TOPIRAMATE
     Dosage: UNK
     Route: 065

REACTIONS (9)
  - Hallucination [Recovered/Resolved]
  - Hallucination, tactile [Recovered/Resolved]
  - Hallucination, visual [Recovered/Resolved]
  - Suicidal ideation [Recovered/Resolved]
  - Frustration tolerance decreased [Recovered/Resolved]
  - Negativism [Recovered/Resolved]
  - Mood swings [Recovered/Resolved]
  - Off label use [Recovered/Resolved]
  - Product use issue [Unknown]
